FAERS Safety Report 17490641 (Version 3)
Quarter: 2020Q2

REPORT INFORMATION
  Report Type: Spontaneous
  Country: US (occurrence: US)
  Receive Date: 20200303
  Receipt Date: 20200410
  Transmission Date: 20200713
  Serious: No
  Sender: FDA-Public Use
  Company Number: US-GLAXOSMITHKLINE-US2020034808

PATIENT
  Sex: Female
  Weight: 82.09 kg

DRUGS (2)
  1. NICODERM CQ [Suspect]
     Active Substance: NICOTINE
     Indication: SMOKING CESSATION THERAPY
     Dosage: UNK
  2. NICODERM CQ [Suspect]
     Active Substance: NICOTINE
     Indication: SMOKING CESSATION THERAPY
     Dosage: UNK
     Dates: start: 20200114, end: 20200220

REACTIONS (5)
  - Application site vesicles [Unknown]
  - Application site rash [Unknown]
  - Application site exfoliation [Unknown]
  - Application site erythema [Unknown]
  - Application site discolouration [Unknown]
